FAERS Safety Report 7349152-4 (Version None)
Quarter: 2011Q1

REPORT INFORMATION
  Report Type: 
  Country: None (occurrence: None)
  Receive Date: 20110314
  Receipt Date: 20110308
  Transmission Date: 20110831
  Serious: Yes (Life-Threatening, Hospitalization)
  Sender: FDA-Public Use
  Company Number: IT-EISAI INC-E7389-01053-CLI-IT

PATIENT
  Sex: Male
  Weight: 70 kg

DRUGS (28)
  1. FOLINGRAV [Concomitant]
     Route: 048
     Dates: start: 20100928
  2. E7389 (BOLD) [Suspect]
     Indication: NON-SMALL CELL LUNG CANCER
     Route: 041
     Dates: start: 20101027, end: 20101028
  3. CHLORIDRATE SERTRALINE [Concomitant]
     Indication: DEPRESSION
     Route: 048
     Dates: start: 20101028
  4. MORPHINE [Concomitant]
     Indication: PAIN
  5. PREDNISONE [Concomitant]
     Indication: PAIN PROPHYLAXIS
     Route: 048
     Dates: start: 20100928, end: 20101021
  6. TRANEXAMIC ACID [Concomitant]
     Indication: PROPHYLAXIS
     Dates: start: 20101028
  7. CALCIUM [Concomitant]
     Indication: CALCIUM DEFICIENCY
     Route: 048
     Dates: start: 20101007, end: 20101007
  8. GRANISETRON HCL [Concomitant]
     Route: 041
  9. OXYGEN [Concomitant]
     Route: 055
     Dates: start: 20101001, end: 20101013
  10. PEMETREXED [Suspect]
     Indication: NON-SMALL CELL LUNG CANCER
     Route: 011
     Dates: start: 20101007, end: 20101028
  11. SALBUTOMALO SULPHATE [Concomitant]
     Dates: start: 20100928
  12. MORPHINE [Concomitant]
     Route: 058
     Dates: start: 20101002, end: 20101013
  13. OMEPRAZOLE [Concomitant]
     Indication: PROPHYLAXIS
     Route: 048
     Dates: start: 20100928
  14. ENOXAPARINA SODICA [Concomitant]
     Route: 058
     Dates: start: 20101021
  15. CLEXANE [Concomitant]
     Indication: THROMBOSIS
     Route: 058
     Dates: start: 20101028
  16. LEVOFLOXACIN [Concomitant]
     Indication: INFECTION PROPHYLAXIS
     Route: 048
     Dates: start: 20100928, end: 20101014
  17. MYCOSTATIN [Concomitant]
     Dates: start: 20101021
  18. CO-EFFERALGAN [Concomitant]
     Indication: PAIN
     Route: 048
     Dates: start: 20100928
  19. LORAZEPAM [Concomitant]
     Indication: PROPHYLAXIS
     Route: 048
     Dates: start: 20100928
  20. CARDIAZOL-PARACODINA [Concomitant]
     Indication: COUGH
     Route: 048
     Dates: start: 20100928
  21. TRANEXAMIC ACID [Concomitant]
     Route: 048
     Dates: start: 20101004, end: 20101006
  22. KETOROLAC TROMETHAMINE [Concomitant]
     Dates: start: 20101021, end: 20101021
  23. VOLUVEN [Concomitant]
     Indication: HYPOTENSION
     Route: 041
     Dates: start: 20101103, end: 20101103
  24. TACHIDOL [Concomitant]
     Indication: PAIN
     Dates: start: 20100928
  25. SOLDESAM [Concomitant]
     Indication: SUPPORTIVE CARE
     Route: 048
     Dates: start: 20100928
  26. LASIX [Concomitant]
     Dates: start: 20101001
  27. PARACETAMOLO [Concomitant]
     Indication: PAIN
     Dates: start: 20101021, end: 20101021
  28. RANITIDINE [Concomitant]
     Indication: PROPHYLAXIS
     Route: 041

REACTIONS (2)
  - HEPATITIS [None]
  - ABDOMINAL PAIN [None]
